FAERS Safety Report 11177100 (Version 1)
Quarter: 2015Q2

REPORT INFORMATION
  Report Type: Spontaneous
  Country: US (occurrence: US)
  Receive Date: 20150610
  Receipt Date: 20150610
  Transmission Date: 20150821
  Serious: Yes (Hospitalization)
  Sender: FDA-Public Use
  Company Number: US-ROCHE-1589568

PATIENT
  Age: 77 Year
  Sex: Female
  Weight: 104.32 kg

DRUGS (31)
  1. SYNTHROID [Suspect]
     Active Substance: LEVOTHYROXINE SODIUM
     Indication: PRODUCT USED FOR UNKNOWN INDICATION
     Route: 065
  2. HEPARIN FLUSH [Concomitant]
     Route: 042
     Dates: start: 20150416, end: 20150417
  3. BENADRYL [Concomitant]
     Active Substance: DIPHENHYDRAMINE HYDROCHLORIDE
     Dosage: 2 CAPSULES
     Route: 065
     Dates: start: 20150430, end: 20150430
  4. FAMOTIDINE. [Concomitant]
     Active Substance: FAMOTIDINE
     Dosage: 20MG/50ML
     Route: 065
     Dates: start: 20150430, end: 20150430
  5. GLUCOSAMINE CHONDROITIN COMPLEX [Concomitant]
     Active Substance: CHONDROITIN SULFATE (BOVINE)\GLUCOSAMINE HYDROCHLORIDE
     Route: 048
  6. IMDUR [Concomitant]
     Active Substance: ISOSORBIDE MONONITRATE
     Route: 065
  7. CLOPIDOGREL [Concomitant]
     Active Substance: CLOPIDOGREL BISULFATE
     Route: 048
  8. COUMADINE [Concomitant]
     Active Substance: WARFARIN SODIUM
     Route: 065
  9. LASIX [Suspect]
     Active Substance: FUROSEMIDE
     Indication: PRODUCT USED FOR UNKNOWN INDICATION
     Route: 048
  10. SYNTHROID [Concomitant]
     Active Substance: LEVOTHYROXINE SODIUM
     Route: 048
  11. TENORMIN [Suspect]
     Active Substance: ATENOLOL
     Indication: PRODUCT USED FOR UNKNOWN INDICATION
     Route: 048
  12. ALTEPLASE [Concomitant]
     Active Substance: ALTEPLASE
     Dosage: PUSH ONCE
     Route: 065
     Dates: start: 20150416, end: 20150416
  13. BENADRYL [Concomitant]
     Active Substance: DIPHENHYDRAMINE HYDROCHLORIDE
     Dosage: 2 CAPSULES
     Route: 065
     Dates: start: 20150423, end: 20150423
  14. HEPARIN FLUSH [Concomitant]
     Route: 042
     Dates: start: 20150430, end: 20150430
  15. BENADRYL [Concomitant]
     Active Substance: DIPHENHYDRAMINE HYDROCHLORIDE
     Dosage: 2 CAPSULES
     Route: 065
     Dates: start: 20150416, end: 20150416
  16. FAMOTIDINE. [Concomitant]
     Active Substance: FAMOTIDINE
     Dosage: 20MG/50ML
     Route: 065
     Dates: start: 20150416, end: 20150416
  17. NITROSTAT [Concomitant]
     Active Substance: NITROGLYCERIN
     Route: 060
  18. LEVOTHYROXINE [Concomitant]
     Active Substance: LEVOTHYROXINE
     Route: 065
     Dates: start: 20111024
  19. HEPARIN FLUSH [Concomitant]
     Dosage: PUSH
     Route: 065
     Dates: start: 20150423, end: 20150423
  20. APAP [Concomitant]
     Active Substance: ACETAMINOPHEN
     Dosage: 650 MG/2 TABLETS
     Route: 065
     Dates: start: 20150416, end: 20150416
  21. APAP [Concomitant]
     Active Substance: ACETAMINOPHEN
     Route: 042
     Dates: start: 20150416, end: 20150416
  22. PREDNISONE. [Suspect]
     Active Substance: PREDNISONE
     Indication: PRODUCT USED FOR UNKNOWN INDICATION
     Route: 048
  23. FAMOTIDINE. [Concomitant]
     Active Substance: FAMOTIDINE
     Dosage: 20MG/50ML
     Route: 042
     Dates: start: 20150423, end: 20150423
  24. ZESTRIL [Concomitant]
     Active Substance: LISINOPRIL
     Route: 065
  25. BONVIVA [Suspect]
     Active Substance: IBANDRONATE SODIUM
     Indication: PRODUCT USED FOR UNKNOWN INDICATION
     Route: 065
  26. IMDUR [Suspect]
     Active Substance: ISOSORBIDE MONONITRATE
     Indication: PRODUCT USED FOR UNKNOWN INDICATION
     Route: 065
  27. ZOFRAN [Suspect]
     Active Substance: ONDANSETRON HYDROCHLORIDE
     Indication: PRODUCT USED FOR UNKNOWN INDICATION
     Route: 065
  28. LOPRESSOR [Concomitant]
     Active Substance: METOPROLOL TARTRATE
     Route: 048
  29. NAPROSYN [Suspect]
     Active Substance: NAPROXEN
     Indication: PRODUCT USED FOR UNKNOWN INDICATION
     Route: 065
  30. LIPITOR [Suspect]
     Active Substance: ATORVASTATIN CALCIUM
     Indication: PRODUCT USED FOR UNKNOWN INDICATION
     Route: 065
  31. TORISEL [Suspect]
     Active Substance: TEMSIROLIMUS
     Indication: RENAL CELL CARCINOMA
     Dosage: 6 CYCLES
     Route: 042
     Dates: start: 20150416

REACTIONS (3)
  - Acute myocardial infarction [Recovered/Resolved with Sequelae]
  - Angina unstable [Unknown]
  - Atrial fibrillation [Unknown]

NARRATIVE: CASE EVENT DATE: 20150504
